FAERS Safety Report 8238986-X (Version None)
Quarter: 2012Q1

REPORT INFORMATION
  Report Type: 
  Country: None (occurrence: None)
  Receive Date: 20120327
  Receipt Date: 20120320
  Transmission Date: 20120608
  Serious: Yes (Other)
  Sender: FDA-Public Use
  Company Number: PHHY2012AU019361

PATIENT
  Sex: Female

DRUGS (2)
  1. ORAL CONTRACEPTIVE NOS [Interacting]
  2. GILENYA [Suspect]
     Route: 048
     Dates: start: 20110501, end: 20111101

REACTIONS (8)
  - SOMNOLENCE [None]
  - HEADACHE [None]
  - FATIGUE [None]
  - ALOPECIA [None]
  - MATERNAL EXPOSURE DURING PREGNANCY [None]
  - ABORTION SPONTANEOUS [None]
  - DRUG INTERACTION [None]
  - BACK PAIN [None]
